FAERS Safety Report 23207547 (Version 1)
Quarter: 2023Q4

REPORT INFORMATION
  Report Type: Spontaneous
  Country: US (occurrence: US)
  Receive Date: 20231120
  Receipt Date: 20231120
  Transmission Date: 20240110
  Serious: No
  Sender: FDA-Public Use
  Company Number: US-BRACCO-2023US00136

PATIENT
  Age: 59 Year
  Sex: Female

DRUGS (3)
  1. LUMASON [Suspect]
     Active Substance: SULFUR HEXAFLUORIDE
     Indication: Diagnostic procedure
     Dosage: 2 ML, SINGLE
     Dates: start: 20221221, end: 20221221
  2. LUMASON [Suspect]
     Active Substance: SULFUR HEXAFLUORIDE
     Indication: Diagnostic procedure
     Dosage: 2 ML, SINGLE
     Dates: start: 20221221, end: 20221221
  3. LUMASON [Suspect]
     Active Substance: SULFUR HEXAFLUORIDE
     Indication: Diagnostic procedure
     Dosage: 2 ML, SINGLE
     Dates: start: 20221221, end: 20221221

REACTIONS (1)
  - Adverse event [Unknown]

NARRATIVE: CASE EVENT DATE: 20221221
